FAERS Safety Report 4862376-0 (Version None)
Quarter: 2005Q4

REPORT INFORMATION
  Report Type: 
  Country: None (occurrence: None)
  Receive Date: 20051221
  Receipt Date: 20051216
  Transmission Date: 20060501
  Serious: Yes (Other)
  Sender: FDA-Public Use
  Company Number: FR-GILEAD-2005-0009030

PATIENT
  Sex: Male
  Weight: 63 kg

DRUGS (1)
  1. TENOFOVIR DF [Suspect]
     Indication: HEPATITIS B
     Route: 048
     Dates: start: 20051025

REACTIONS (3)
  - ALANINE AMINOTRANSFERASE INCREASED [None]
  - ASPARTATE AMINOTRANSFERASE INCREASED [None]
  - THROMBOCYTOPENIA [None]
